FAERS Safety Report 6992514-5 (Version None)
Quarter: 2010Q3

REPORT INFORMATION
  Report Type: 
  Country: None (occurrence: None)
  Receive Date: 20100917
  Receipt Date: 20100903
  Transmission Date: 20110219
  Serious: No
  Sender: FDA-Public Use
  Company Number: US-B.I. PHARMACEUTICALS,INC./RIDGEFIELD-2010-BP-10068BP

PATIENT
  Sex: Female

DRUGS (1)
  1. ZANTAC 75 [Suspect]
     Indication: DYSPEPSIA
     Dosage: 75 MG
     Route: 048
     Dates: start: 20100903, end: 20100903

REACTIONS (2)
  - GLOSSITIS [None]
  - GLOSSODYNIA [None]
